FAERS Safety Report 6925477-9 (Version None)
Quarter: 2010Q3

REPORT INFORMATION
  Report Type: 
  Country: None (occurrence: None)
  Receive Date: 20100816
  Receipt Date: 20100811
  Transmission Date: 20110219
  Serious: No
  Sender: FDA-Public Use
  Company Number: US-PFIZER INC-2010101460

PATIENT
  Age: 53 Year
  Sex: Female

DRUGS (1)
  1. CELEBREX [Suspect]
     Dosage: 200 MG, DAILY

REACTIONS (1)
  - TINNITUS [None]
